FAERS Safety Report 7970751-0 (Version None)
Quarter: 2011Q4

REPORT INFORMATION
  Report Type: 
  Country: None (occurrence: None)
  Receive Date: 20111212
  Receipt Date: 20111130
  Transmission Date: 20120403
  Serious: Yes (Hospitalization)
  Sender: FDA-Public Use
  Company Number: PHHY2011IT100889

PATIENT
  Sex: Female

DRUGS (13)
  1. PRAZEPAM [Suspect]
     Indication: INTENTIONAL OVERDOSE
     Dosage: 15 POSOLOGICAL UNITS
     Route: 048
     Dates: start: 20110430, end: 20110430
  2. SIMVASTATIN [Concomitant]
  3. ESCITALOPRAM [Suspect]
     Indication: INTENTIONAL OVERDOSE
     Dosage: 20 MG, UNK
     Route: 048
  4. ESCITALOPRAM [Suspect]
     Dosage: 14 POSOLOGICAL UNITS
     Route: 048
     Dates: start: 20110430, end: 20110430
  5. METFORAL [Concomitant]
     Indication: TYPE 2 DIABETES MELLITUS
  6. ISOPTIN [Concomitant]
     Indication: HYPERTENSION
     Dosage: 2 POSOLOGICAL UNIT
     Route: 048
  7. TEGRETOL [Suspect]
     Dosage: 9 POSOLOGICAL UNITS
     Route: 048
     Dates: start: 20110430, end: 20110430
  8. LENDORMIN [Suspect]
     Dosage: 0.25 MG, UNK
     Route: 048
  9. LENDORMIN [Suspect]
     Dosage: ONE POSOLOGICAL UNIT
     Route: 048
     Dates: start: 20110430, end: 20110430
  10. TEGRETOL [Suspect]
     Dosage: 200 MG, UNK
     Route: 048
  11. ATENOLOL [Concomitant]
     Indication: HYPERTENSION
     Dosage: 100 MG, UNK
     Route: 048
  12. ACETYLSALICYLIC ACID SRT [Concomitant]
     Dosage: 100 MG, UNK
     Route: 048
  13. LORAZEPAM [Concomitant]
     Indication: DEPRESSION
     Dosage: 2 POSOLOGICAL UNIT
     Route: 048

REACTIONS (7)
  - SELF-INJURIOUS IDEATION [None]
  - INTENTIONAL OVERDOSE [None]
  - FEELING ABNORMAL [None]
  - MOOD ALTERED [None]
  - SOPOR [None]
  - DRUG LEVEL INCREASED [None]
  - BRADYPHRENIA [None]
